FAERS Safety Report 5833774-3 (Version None)
Quarter: 2008Q3

REPORT INFORMATION
  Report Type: 
  Country: None (occurrence: None)
  Receive Date: 20080801
  Receipt Date: 20080724
  Transmission Date: 20090109
  Serious: Yes (Other)
  Sender: FDA-Public Use
  Company Number: 2008AL008844

PATIENT
  Sex: Female

DRUGS (1)
  1. DIGOXIN [Suspect]
     Indication: ARRHYTHMIA
     Dosage: PO

REACTIONS (11)
  - ANHEDONIA [None]
  - ANXIETY [None]
  - COLOUR BLINDNESS [None]
  - DIZZINESS [None]
  - HALO VISION [None]
  - HEART RATE IRREGULAR [None]
  - HYPOTENSION [None]
  - MENTAL DISORDER [None]
  - MULTIPLE INJURIES [None]
  - PAIN [None]
  - PALPITATIONS [None]
